FAERS Safety Report 5383421-2 (Version None)
Quarter: 2007Q3

REPORT INFORMATION
  Report Type: 
  Country: None (occurrence: None)
  Receive Date: 20070710
  Receipt Date: 20070425
  Transmission Date: 20080115
  Serious: Yes (Other)
  Sender: FDA-Public Use
  Company Number: DE-PFIZER INC-2007052690

PATIENT
  Age: 50 Year
  Sex: Female

DRUGS (2)
  1. MIGLITOL TABLET [Suspect]
     Indication: TYPE 2 DIABETES MELLITUS
     Dosage: DAILY DOSE:100MG
     Route: 048
     Dates: start: 20070406, end: 20070424
  2. MERCAZOLE [Suspect]
     Indication: BASEDOW'S DISEASE
     Dosage: DAILY DOSE:10MG
     Route: 048
     Dates: start: 20070316, end: 20070424

REACTIONS (1)
  - GAMMA-GLUTAMYLTRANSFERASE INCREASED [None]
